FAERS Safety Report 9383465 (Version 2)
Quarter: 2013Q3

REPORT INFORMATION
  Report Type: Spontaneous
  Country: JP (occurrence: JP)
  Receive Date: 20130704
  Receipt Date: 20130730
  Transmission Date: 20140515
  Serious: Yes (Other)
  Sender: FDA-Public Use
  Company Number: JP-PFIZER INC-2013195870

PATIENT
  Age: 45 Year
  Sex: Female
  Weight: 56 kg

DRUGS (2)
  1. LYRICA [Suspect]
     Indication: PAIN
     Dosage: 75 MG/DAY
     Route: 048
     Dates: start: 20130603, end: 20130609
  2. LYRICA [Suspect]
     Indication: NEURALGIA

REACTIONS (1)
  - Bipolar I disorder [Recovered/Resolved]
